FAERS Safety Report 4613592-4 (Version None)
Quarter: 2005Q1

REPORT INFORMATION
  Report Type: 
  Country: None (occurrence: None)
  Receive Date: 20050321
  Receipt Date: 20050309
  Transmission Date: 20050727
  Serious: Yes (Death, Hospitalization)
  Sender: FDA-Public Use
  Company Number: US-JNJFOC-20050303106

PATIENT
  Sex: Male

DRUGS (1)
  1. REMINYL [Suspect]
     Route: 049

REACTIONS (4)
  - DEHYDRATION [None]
  - FALL [None]
  - MYOCARDIAL INFARCTION [None]
  - PNEUMONIA [None]
